FAERS Safety Report 7851767-1 (Version None)
Quarter: 2011Q4

REPORT INFORMATION
  Report Type: 
  Country: None (occurrence: None)
  Receive Date: 20111013
  Receipt Date: 20111006
  Transmission Date: 20120403
  Serious: Yes (Other)
  Sender: FDA-Public Use
  Company Number: 2011030029

PATIENT
  Age: 49 Year
  Sex: Female
  Weight: 60.782 kg

DRUGS (12)
  1. ALENDRONATE SODIUM [Concomitant]
  2. UNIPHYL [Concomitant]
  3. SYMBICORT [Concomitant]
  4. ZEMAIRA [Suspect]
     Indication: ALPHA-1 ANTI-TRYPSIN DEFICIENCY
     Dosage: SEE IMAGE
     Route: 042
     Dates: start: 20091217
  5. CALCIUM WITH D (CALCIUM WITH VITAMIN D) [Concomitant]
  6. PROMETHAZINE [Concomitant]
  7. ALBUTEROL [Concomitant]
  8. IPRATROPIUM BR (IPRATROPIUM) [Concomitant]
  9. AMITRIPTYLINE HCL [Concomitant]
  10. VITAMIN D [Concomitant]
  11. SPIRIVA [Concomitant]
  12. FERROUS SULFATE TAB [Concomitant]

REACTIONS (1)
  - URINARY TRACT INFECTION [None]
